FAERS Safety Report 4900016-2 (Version None)
Quarter: 2006Q1

REPORT INFORMATION
  Report Type: 
  Country: None (occurrence: None)
  Receive Date: 20060203
  Receipt Date: 20060125
  Transmission Date: 20060701
  Serious: Yes (Other)
  Sender: FDA-Public Use
  Company Number: 2006UW01304

PATIENT
  Age: 69 Year
  Sex: Female

DRUGS (4)
  1. NEXIUM [Suspect]
     Route: 048
  2. NEXIUM [Suspect]
     Dosage: 1/2 CAPSULE
     Route: 048
  3. ANTIDEPRESSANTS [Concomitant]
  4. CANCER MEDICATIONS [Concomitant]

REACTIONS (3)
  - AKATHISIA [None]
  - ARTHRITIS [None]
  - NEURALGIA [None]
